FAERS Safety Report 4945323-2 (Version None)
Quarter: 2006Q1

REPORT INFORMATION
  Report Type: 
  Country: None (occurrence: None)
  Receive Date: 20060315
  Receipt Date: 20060315
  Transmission Date: 20060701
  Serious: Yes (Other)
  Sender: FDA-Public Use
  Company Number: None

PATIENT
  Sex: Female
  Weight: 63.9572 kg

DRUGS (3)
  1. EPINEPHRINE [Suspect]
     Indication: CATARACT OPERATION
     Dosage: 1CC INTRAOCULAR {USED THROUGHOUT CASE]
     Route: 031
  2. EPINEPHRINE [Suspect]
  3. BSS [Suspect]

REACTIONS (2)
  - ANTERIOR CHAMBER DISORDER [None]
  - POST PROCEDURAL COMPLICATION [None]
